FAERS Safety Report 9170779 (Version 3)
Quarter: 2013Q2

REPORT INFORMATION
  Report Type: Spontaneous
  Country: US (occurrence: US)
  Receive Date: 20130319
  Receipt Date: 20130508
  Transmission Date: 20140414
  Serious: No
  Sender: FDA-Public Use
  Company Number: US-PFIZER INC-2013089007

PATIENT
  Age: 83 Year
  Sex: Female
  Weight: 41.72 kg

DRUGS (1)
  1. ADVIL MIGRAINE [Suspect]
     Indication: MIGRAINE
     Dosage: 200 MG TWO CAPSULE, UNK
     Dates: start: 20130315, end: 20130315

REACTIONS (1)
  - Drug ineffective [Unknown]
